FAERS Safety Report 15900797 (Version 1)
Quarter: 2019Q1

REPORT INFORMATION
  Report Type: Spontaneous
  Country: ES (occurrence: ES)
  Receive Date: 20190201
  Receipt Date: 20190201
  Transmission Date: 20190417
  Serious: Yes (Hospitalization, Other)
  Sender: FDA-Public Use
  Company Number: ES-BRACCO-2019ES00272

PATIENT
  Age: 63 Year
  Sex: Female

DRUGS (2)
  1. ENALAPRIL                          /00574902/ [Concomitant]
     Active Substance: ENALAPRIL
     Indication: HYPERTENSION
     Route: 048
  2. IOPAMIRO [Suspect]
     Active Substance: IOPAMIDOL
     Indication: DIAGNOSTIC PROCEDURE
     Dosage: 120 ML, SINGLE
     Route: 065
     Dates: start: 20181227, end: 20181227

REACTIONS (1)
  - Hemiparesis [Recovered/Resolved]

NARRATIVE: CASE EVENT DATE: 20181227
